FAERS Safety Report 11139547 (Version 1)
Quarter: 2015Q2

REPORT INFORMATION
  Report Type: Spontaneous
  Country: JP (occurrence: JP)
  Receive Date: 20150527
  Receipt Date: 20150527
  Transmission Date: 20150821
  Serious: Yes (Hospitalization, Other)
  Sender: FDA-Public Use
  Company Number: JP-CIPLA LTD.-2015JP04073

PATIENT

DRUGS (2)
  1. GEMCITABINE [Suspect]
     Active Substance: GEMCITABINE\GEMCITABINE HYDROCHLORIDE
     Indication: GALLBLADDER CANCER
     Dosage: UNK
     Route: 065
  2. TS-1 [Suspect]
     Active Substance: GIMERACIL\OTERACIL\TEGAFUR
     Indication: GALLBLADDER CANCER
     Route: 048

REACTIONS (22)
  - Pleural effusion [Unknown]
  - Renal impairment [Unknown]
  - Ocular hyperaemia [Unknown]
  - Oedema peripheral [Unknown]
  - Retinal exudates [Unknown]
  - Tricuspid valve incompetence [Unknown]
  - Raynaud^s phenomenon [Unknown]
  - Cardiomegaly [Unknown]
  - Blood creatinine increased [Unknown]
  - Haematuria [Unknown]
  - Retinal haemorrhage [Unknown]
  - Mitral valve incompetence [Unknown]
  - Hypertensive emergency [Unknown]
  - Peritonitis [Unknown]
  - Metastases to liver [Unknown]
  - Haemolytic uraemic syndrome [Unknown]
  - Thrombocytopenia [Unknown]
  - Papilloedema [Unknown]
  - Interstitial lung disease [Unknown]
  - Haemangioma of spleen [Unknown]
  - Peripheral swelling [Unknown]
  - Proteinuria [Unknown]
